FAERS Safety Report 6043722-1 (Version None)
Quarter: 2009Q1

REPORT INFORMATION
  Report Type: 
  Country: None (occurrence: None)
  Receive Date: 20090115
  Receipt Date: 20090101
  Transmission Date: 20090719
  Serious: Yes (Hospitalization, Other)
  Sender: FDA-Public Use
  Company Number: 2009S1000006

PATIENT
  Age: 56 Year
  Sex: Female

DRUGS (15)
  1. PHOSPHOSODA FLAVOR NOT SPECIFIED [Suspect]
     Indication: COLONOSCOPY
     Dosage: 90 ML, TOTAL; PO
     Route: 048
     Dates: start: 20061120, end: 20061121
  2. ALPRAZOLAM [Concomitant]
  3. BUPROPION HCL [Concomitant]
  4. ESTRADIOL [Concomitant]
  5. FELODIPINE [Concomitant]
  6. LEVOTHYROXINE [Concomitant]
  7. SEROQUEL [Concomitant]
  8. RANITIDINE [Concomitant]
  9. SYNTHROID [Concomitant]
  10. PREVACID [Concomitant]
  11. PRINIVIL [Concomitant]
  12. ALPRAZOLAM [Concomitant]
  13. SEROQUEL [Concomitant]
  14. EXCEDRIN [Concomitant]
  15. ESTRACE [Concomitant]

REACTIONS (5)
  - COLITIS ISCHAEMIC [None]
  - HAEMOGLOBIN DECREASED [None]
  - RENAL FAILURE ACUTE [None]
  - RENAL FAILURE CHRONIC [None]
  - TREATMENT NONCOMPLIANCE [None]
